FAERS Safety Report 8460809-4 (Version None)
Quarter: 2012Q2

REPORT INFORMATION
  Report Type: 
  Country: None (occurrence: None)
  Receive Date: 20120624
  Receipt Date: 20120423
  Transmission Date: 20120825
  Serious: Yes (Death, Other)
  Sender: FDA-Public Use
  Company Number: PHHY2008KR07705

PATIENT
  Sex: Male
  Weight: 58 kg

DRUGS (1)
  1. EXJADE [Suspect]
     Indication: APLASTIC ANAEMIA
     Dosage: 1250 MG, UNK
     Route: 048
     Dates: start: 20070619, end: 20080505

REACTIONS (3)
  - SEPTIC SHOCK [None]
  - PNEUMONIA [None]
  - SKIN DISORDER [None]
